FAERS Safety Report 9769401 (Version 1)
Quarter: 2013Q3

REPORT INFORMATION
  Report Type: Spontaneous
  Country: FR (occurrence: None)
  Receive Date: 20130906
  Receipt Date: 20130906
  Transmission Date: 20140515
  Serious: Yes (Life-Threatening)
  Sender: FDA-Public Use
  Company Number: 2013MPI00243

PATIENT
  Age: 24 Year
  Sex: Male

DRUGS (19)
  1. ADCETRIS [Suspect]
     Indication: HODGKIN^S DISEASE
     Route: 042
     Dates: start: 20130319
  2. ETOPOSIDE (ETOPOSIDE) [Concomitant]
  3. RITUXIMAB (RITUXIMAB) [Concomitant]
  4. CISPLATIN (CISPLATIN) [Concomitant]
  5. CYTARABINE (CYTARABINE) [Concomitant]
  6. DEXAMETHASONE (DEXAMETHASONE SODIUM PHOSPHATE) [Concomitant]
  7. AUGMENTIN (AMOXICILLIN TRIHYDRATE, CLAVULANATE POTASSIUM) [Concomitant]
  8. TAVANIC (LEVOFLOXACIN) [Concomitant]
  9. FLAGYL (METRONIDAZOLE) [Concomitant]
  10. FORTUM (CEFTAZIDIME) (INJECTION) (CEFTAZIDIME) [Concomitant]
  11. AMIKLIN (AMIKACIN) [Concomitant]
  12. VANCOMYCINE MERCK (VANCOMYCIN HYDROCHLORIDE) [Concomitant]
  13. AMBISOME (AMPHOTERICIN B) INJECTION [Concomitant]
  14. HOLOXAN (IFOSFAMIDE) [Concomitant]
  15. CARBOPLATINE ^EUROCEPT^ (CARBOPLATIN) [Concomitant]
  16. MABTHERA [Concomitant]
  17. GEMCITABINE (GEMCITABINE) [Concomitant]
  18. VINORELBINE (VINORELBINE DITARTRATE) [Concomitant]
  19. CAELYX (DOXORUBICIN HYDROCHLORIDE) [Concomitant]

REACTIONS (8)
  - Respiratory distress [None]
  - Heart rate increased [None]
  - Haemoglobin decreased [None]
  - Platelet count decreased [None]
  - White blood cell count increased [None]
  - Neutrophil count increased [None]
  - Colitis [None]
  - Ultrasound abdomen abnormal [None]
